FAERS Safety Report 5643418-1 (Version None)
Quarter: 2008Q1

REPORT INFORMATION
  Report Type: 
  Country: None (occurrence: None)
  Receive Date: 20080228
  Receipt Date: 20080218
  Transmission Date: 20080703
  Serious: Yes (Other)
  Sender: FDA-Public Use
  Company Number: US-ELI_LILLY_AND_COMPANY-US200712004879

PATIENT
  Age: 28 Year
  Sex: Female
  Weight: 92.517 kg

DRUGS (3)
  1. CYMBALTA [Suspect]
     Indication: PERSONALITY DISORDER
     Dosage: 120 MG, UNK
     Route: 048
     Dates: start: 20050701, end: 20071219
  2. ABILIFY [Concomitant]
     Dosage: 15 MG, UNK
     Dates: start: 20050930
  3. TRAZODONE HCL [Concomitant]
     Dosage: 200 MG, UNK
     Dates: end: 20071219

REACTIONS (5)
  - ABDOMINAL PAIN UPPER [None]
  - FATIGUE [None]
  - HEPATIC STEATOSIS [None]
  - INFLUENZA LIKE ILLNESS [None]
  - LIVER FUNCTION TEST ABNORMAL [None]
